FAERS Safety Report 12163709 (Version 2)
Quarter: 2016Q1

REPORT INFORMATION
  Report Type: Report from Study
  Country: CA (occurrence: CA)
  Receive Date: 20160309
  Receipt Date: 20160321
  Transmission Date: 20160526
  Serious: Yes (Other)
  Sender: FDA-Public Use
  Company Number: CA-AMGEN-CANSL2016027694

PATIENT
  Age: 53 Year
  Sex: Male

DRUGS (5)
  1. REPATHA [Suspect]
     Active Substance: EVOLOCUMAB
     Indication: DYSLIPIDAEMIA
     Dosage: 140 MG/1.0 ML, UNK
     Route: 058
     Dates: start: 20160301
  2. LORAZEPAM A [Concomitant]
     Active Substance: LORAZEPAM
  3. ASA [Concomitant]
     Active Substance: ASPIRIN
     Dosage: 80 UNK, UNK
     Route: 048
  4. PREDNISONE                         /00044702/ [Concomitant]
     Active Substance: PREDNISONE
     Dosage: 30 MG, UNK
  5. NEXIUM [Concomitant]
     Active Substance: ESOMEPRAZOLE MAGNESIUM
     Dosage: 40 UNK, UNK
     Route: 048

REACTIONS (2)
  - Heart rate increased [Unknown]
  - Palpitations [Recovered/Resolved]

NARRATIVE: CASE EVENT DATE: 20160302
